FAERS Safety Report 14207854 (Version 2)
Quarter: 2017Q4

REPORT INFORMATION
  Report Type: Spontaneous
  Country: FR (occurrence: FR)
  Receive Date: 20171121
  Receipt Date: 20171217
  Transmission Date: 20180321
  Serious: Yes (Other)
  Sender: FDA-Public Use
  Company Number: FR-MERCK KGAA-2034734

PATIENT
  Age: 65 Year
  Sex: Female
  Weight: 106 kg

DRUGS (1)
  1. NOVOTHYROX [Suspect]
     Active Substance: LEVOTHYROXINE SODIUM
     Indication: HYPOTHYROIDISM
     Route: 048
     Dates: start: 20170315, end: 20170831

REACTIONS (11)
  - Blood thyroid stimulating hormone [Unknown]
  - Alopecia [Recovered/Resolved]
  - Weight increased [Recovering/Resolving]
  - Amnesia [Not Recovered/Not Resolved]
  - Vertigo [Recovering/Resolving]
  - Eye disorder [Not Recovered/Not Resolved]
  - Depression [Recovering/Resolving]
  - Fatigue [Recovered/Resolved]
  - Myalgia [Recovering/Resolving]
  - Haematoma [Recovering/Resolving]
  - Feeling hot [Recovering/Resolving]

NARRATIVE: CASE EVENT DATE: 201703
